FAERS Safety Report 11930975 (Version 1)
Quarter: 2016Q1

REPORT INFORMATION
  Report Type: Spontaneous
  Country: US (occurrence: None)
  Receive Date: 20160120
  Receipt Date: 20160120
  Transmission Date: 20160526
  Serious: Yes (Life-Threatening, Hospitalization)
  Sender: FDA-Public Use
  Company Number: None

PATIENT
  Age: 63 Year
  Sex: Male
  Weight: 72 kg

DRUGS (1)
  1. BOTULINUM TOXIN TYPE A [Suspect]
     Active Substance: BOTULINUM TOXIN TYPE A
     Indication: ESSENTIAL TREMOR
     Dosage: 100 UNITS
     Route: 028
     Dates: start: 20150709, end: 20150709

REACTIONS (3)
  - Angioedema [None]
  - Laryngeal disorder [None]
  - Post procedural complication [None]

NARRATIVE: CASE EVENT DATE: 20150828
